FAERS Safety Report 7381648-1 (Version None)
Quarter: 2011Q1

REPORT INFORMATION
  Report Type: 
  Country: None (occurrence: None)
  Receive Date: 20110329
  Receipt Date: 20110322
  Transmission Date: 20110831
  Serious: Yes (Other)
  Sender: FDA-Public Use
  Company Number: US-US-EMD SERONO, INC.-7049847

PATIENT
  Sex: Female

DRUGS (1)
  1. REBIF [Suspect]
     Indication: MULTIPLE SCLEROSIS
     Route: 058
     Dates: start: 20100326, end: 20110226

REACTIONS (4)
  - PARAESTHESIA [None]
  - MITRAL VALVE PROLAPSE [None]
  - CENTRAL NERVOUS SYSTEM LESION [None]
  - PAIN IN EXTREMITY [None]
